FAERS Safety Report 14733448 (Version 1)
Quarter: 2018Q2

REPORT INFORMATION
  Report Type: Report from Study
  Country: AU (occurrence: AU)
  Receive Date: 20180409
  Receipt Date: 20180409
  Transmission Date: 20180711
  Serious: Yes (Hospitalization)
  Sender: FDA-Public Use
  Company Number: AU-ACTELION-A-CH2018-170200

PATIENT
  Age: 82 Year
  Sex: Female

DRUGS (2)
  1. REVATIO [Suspect]
     Active Substance: SILDENAFIL CITRATE
     Indication: SYSTEMIC SCLERODERMA
     Dosage: 20 MG, TID
     Route: 048
     Dates: start: 201503
  2. OPSUMIT [Suspect]
     Active Substance: MACITENTAN
     Indication: SYSTEMIC SCLERODERMA
     Dosage: 10 MG, OD
     Route: 048
     Dates: start: 20141201

REACTIONS (5)
  - Pain [Unknown]
  - Fall [Unknown]
  - Spinal fracture [Unknown]
  - Nausea [Not Recovered/Not Resolved]
  - Decreased appetite [Not Recovered/Not Resolved]

NARRATIVE: CASE EVENT DATE: 201710
